FAERS Safety Report 11132184 (Version 2)
Quarter: 2016Q2

REPORT INFORMATION
  Report Type: Spontaneous
  Country: US (occurrence: US)
  Receive Date: 20150522
  Receipt Date: 20160516
  Transmission Date: 20160815
  Serious: No
  Sender: FDA-Public Use
  Company Number: US-MALLINCKRODT-T201502271

PATIENT
  Sex: Male
  Weight: 69 kg

DRUGS (1)
  1. H.P. ACTHAR [Suspect]
     Active Substance: CORTICOTROPIN
     Indication: PROTEINURIA
     Dosage: 80 UNITS, TWICE WEEKLY
     Route: 058
     Dates: start: 2014

REACTIONS (1)
  - Renal impairment [Not Recovered/Not Resolved]
